FAERS Safety Report 7573653-7 (Version None)
Quarter: 2011Q2

REPORT INFORMATION
  Report Type: 
  Country: None (occurrence: None)
  Receive Date: 20110627
  Receipt Date: 20110313
  Transmission Date: 20111010
  Serious: Yes (Hospitalization)
  Sender: FDA-Public Use
  Company Number: IL-ROCHE-777167

PATIENT
  Age: 63 Year
  Sex: Male
  Weight: 70 kg

DRUGS (3)
  1. AVASTIN [Suspect]
     Route: 065
  2. OXALIPLATIN [Concomitant]
  3. XELODA [Suspect]
     Route: 065
     Dates: start: 20100817, end: 20101128

REACTIONS (1)
  - HERNIA [None]
